FAERS Safety Report 7962218-0 (Version None)
Quarter: 2011Q4

REPORT INFORMATION
  Report Type: 
  Country: None (occurrence: None)
  Receive Date: 20111206
  Receipt Date: 20111118
  Transmission Date: 20120403
  Serious: Yes (Hospitalization)
  Sender: FDA-Public Use
  Company Number: 2011-4698

PATIENT
  Age: 7 Year
  Sex: Male
  Weight: 19 kg

DRUGS (2)
  1. INCRELEX [Suspect]
     Indication: BODY HEIGHT BELOW NORMAL
     Dosage: 24 UNITS (24 UNITS, 2 IN 1 D), SUBCUTANEOUS, 24 UNITS (24 UNITS, 2 IN 1 D), SUBCUTANEOUS
     Route: 058
     Dates: start: 20110517, end: 20111005
  2. INCRELEX [Suspect]
     Indication: BODY HEIGHT BELOW NORMAL
     Dosage: 24 UNITS (24 UNITS, 2 IN 1 D), SUBCUTANEOUS, 24 UNITS (24 UNITS, 2 IN 1 D), SUBCUTANEOUS
     Route: 058
     Dates: start: 20111101

REACTIONS (3)
  - POST PROCEDURAL INFECTION [None]
  - POST PROCEDURAL HAEMORRHAGE [None]
  - TONSILLECTOMY [None]
